FAERS Safety Report 8211253-6 (Version None)
Quarter: 2012Q1

REPORT INFORMATION
  Report Type: 
  Country: None (occurrence: None)
  Receive Date: 20120315
  Receipt Date: 20120308
  Transmission Date: 20120608
  Serious: Yes (Hospitalization)
  Sender: FDA-Public Use
  Company Number: FR-SANOFI-AVENTIS-2012SA015616

PATIENT
  Age: 82 Year
  Sex: Female

DRUGS (4)
  1. SOLOSTAR [Suspect]
  2. APIDRA [Suspect]
     Route: 058
     Dates: start: 20120201, end: 20120201
  3. LANTUS [Suspect]
     Route: 058
     Dates: start: 20120207
  4. ATORVASTATIN [Concomitant]
     Route: 048

REACTIONS (2)
  - MALAISE [None]
  - MEDICATION ERROR [None]
